FAERS Safety Report 8361201-3 (Version None)
Quarter: 2012Q2

REPORT INFORMATION
  Report Type: 
  Country: None (occurrence: None)
  Receive Date: 20120515
  Receipt Date: 20110715
  Transmission Date: 20120825
  Serious: No
  Sender: FDA-Public Use
  Company Number: US-ALEXION-A201101072

PATIENT

DRUGS (3)
  1. SOLIRIS [Suspect]
     Indication: PAROXYSMAL NOCTURNAL HAEMOGLOBINURIA
     Dosage: UNK, Q2W
     Route: 042
  2. SOLIRIS [Suspect]
     Dosage: UNK, Q21 DAYS
     Route: 042
  3. SOLIRIS [Suspect]
     Dosage: UNK, Q2W
     Route: 042
     Dates: start: 20110713

REACTIONS (2)
  - HAEMOLYSIS [None]
  - HAEMOGLOBINURIA [None]
